FAERS Safety Report 23385064 (Version 1)
Quarter: 2024Q1

REPORT INFORMATION
  Report Type: Report from Study
  Country: US (occurrence: US)
  Receive Date: 20240109
  Receipt Date: 20240109
  Transmission Date: 20240410
  Serious: Yes (Other)
  Sender: FDA-Public Use
  Company Number: US-ABBVIE-5577234

PATIENT
  Age: 62 Year
  Sex: Female

DRUGS (1)
  1. HUMIRA [Suspect]
     Active Substance: ADALIMUMAB
     Indication: Psoriatic arthropathy
     Dosage: FORM STRENGTH: 40 MG
     Route: 058
     Dates: end: 202312

REACTIONS (3)
  - Ear disorder [Recovering/Resolving]
  - Ear infection [Recovering/Resolving]
  - Middle ear effusion [Recovering/Resolving]

NARRATIVE: CASE EVENT DATE: 20231201
